FAERS Safety Report 10151774 (Version 2)
Quarter: 2014Q4

REPORT INFORMATION
  Report Type: Spontaneous
  Country: IT (occurrence: IT)
  Receive Date: 20140505
  Receipt Date: 20141023
  Transmission Date: 20150528
  Serious: Yes (Hospitalization)
  Sender: FDA-Public Use
  Company Number: IT-PFIZER INC-2014119549

PATIENT
  Age: 48 Year
  Sex: Female

DRUGS (4)
  1. TILADE [Suspect]
     Active Substance: NEDOCROMIL SODIUM
     Indication: TINNITUS
     Dosage: 5 MG/ML, UNK
     Route: 055
     Dates: start: 20140306, end: 20140311
  2. VERTISERC [Suspect]
     Active Substance: BETAHISTINE HYDROCHLORIDE
     Indication: TINNITUS
     Dosage: UNK
     Route: 048
     Dates: start: 20140310, end: 20140312
  3. FLUIMUCIL [Suspect]
     Active Substance: ACETYLCYSTEINE
     Indication: TINNITUS
     Dosage: UNK
     Dates: start: 20140306, end: 20140311
  4. THIOCTIC ACID [Concomitant]
     Active Substance: .ALPHA.-LIPOIC ACID, (+/-)-
     Dosage: UNK
     Dates: end: 20140312

REACTIONS (2)
  - Rash generalised [Recovered/Resolved]
  - Erythema [Recovered/Resolved]

NARRATIVE: CASE EVENT DATE: 20140312
